FAERS Safety Report 7799079-9 (Version None)
Quarter: 2011Q4

REPORT INFORMATION
  Report Type: 
  Country: None (occurrence: None)
  Receive Date: 20111004
  Receipt Date: 20111004
  Transmission Date: 20120403
  Serious: No
  Sender: FDA-Public Use
  Company Number: None

PATIENT
  Age: 7 Year
  Sex: Female
  Weight: 24 kg

DRUGS (1)
  1. BUDESONIDE [Suspect]
     Indication: CROHN'S DISEASE
     Dosage: 9MG PO QD  EARLY JULY REMAINS ON DRUG NOW
     Route: 048

REACTIONS (5)
  - WRONG TECHNIQUE IN DRUG USAGE PROCESS [None]
  - VOMITING [None]
  - DYSPHAGIA [None]
  - CAPSULE PHYSICAL ISSUE [None]
  - PRODUCT SUBSTITUTION ISSUE [None]
